FAERS Safety Report 24767530 (Version 1)
Quarter: 2024Q4

REPORT INFORMATION
  Report Type: Report from Study
  Country: AR (occurrence: AR)
  Receive Date: 20241223
  Receipt Date: 20241223
  Transmission Date: 20250114
  Serious: Yes (Death, Hospitalization)
  Sender: NOVARTIS
  Company Number: AR-002147023-NVSC2024AR218564

PATIENT
  Age: 59 Year
  Sex: Female

DRUGS (1)
  1. KISQALI [Suspect]
     Active Substance: RIBOCICLIB
     Indication: Breast cancer female
     Dosage: UNK
     Route: 065
     Dates: start: 20231116

REACTIONS (12)
  - Breast cancer [Fatal]
  - Metastases to lung [Fatal]
  - Malignant neoplasm progression [Fatal]
  - Pulmonary oedema [Fatal]
  - Malaise [Fatal]
  - Cardio-respiratory arrest [Fatal]
  - Acute respiratory failure [Fatal]
  - Influenza [Fatal]
  - Cough [Fatal]
  - Aphonia [Fatal]
  - Metastases to bone [Unknown]
  - Metastases to liver [Unknown]

NARRATIVE: CASE EVENT DATE: 20241209
